FAERS Safety Report 24856333 (Version 1)
Quarter: 2025Q1

REPORT INFORMATION
  Report Type: Spontaneous
  Country: IN (occurrence: IN)
  Receive Date: 20250117
  Receipt Date: 20250117
  Transmission Date: 20250409
  Serious: Yes (Other)
  Sender: MYLAN
  Company Number: IN-MYLANLABS-2025M1003984

PATIENT
  Age: 50 Year
  Sex: Male

DRUGS (8)
  1. ATORVASTATIN [Suspect]
     Active Substance: ATORVASTATIN
     Indication: Dyslipidaemia
     Dosage: 10 MILLIGRAM, QD, CAPSULE
     Route: 065
  2. ROSUVASTATIN [Suspect]
     Active Substance: ROSUVASTATIN
     Indication: Dyslipidaemia
     Dosage: 10 MILLIGRAM, QD
     Route: 065
  3. ROSUVASTATIN [Suspect]
     Active Substance: ROSUVASTATIN
     Dosage: 5 MILLIGRAM, QD
     Route: 065
  4. FENOFIBRATE [Suspect]
     Active Substance: FENOFIBRATE
     Indication: Dyslipidaemia
     Dosage: 167 MILLIGRAM, QD
     Route: 065
  5. FENOFIBRATE [Suspect]
     Active Substance: FENOFIBRATE
     Dosage: 60 MILLIGRAM, QD
     Route: 065
  6. EZETIMIBE [Suspect]
     Active Substance: EZETIMIBE
     Indication: Dyslipidaemia
     Dosage: 10 MILLIGRAM, QD
     Route: 065
  7. COD LIVER OIL [Suspect]
     Active Substance: COD LIVER OIL
     Indication: Dyslipidaemia
     Dosage: 300 MILLIGRAM, BID
     Route: 065
  8. COD LIVER OIL [Suspect]
     Active Substance: COD LIVER OIL
     Dosage: 300 MILLIGRAM, QD
     Route: 065

REACTIONS (3)
  - Testicular pain [Recovered/Resolved]
  - Erectile dysfunction [Recovered/Resolved]
  - Loss of libido [Recovered/Resolved]
